FAERS Safety Report 9825475 (Version 1)
Quarter: 2013Q4

REPORT INFORMATION
  Report Type: Spontaneous
  Country: US (occurrence: None)
  Receive Date: 20131028
  Receipt Date: 20131028
  Transmission Date: 20140711
  Serious: Yes (Other)
  Sender: FDA-Public Use
  Company Number: 2013US002501

PATIENT
  Age: 57 Year
  Sex: Female
  Weight: 60 kg

DRUGS (3)
  1. ICLUSIG [Suspect]
     Indication: CHRONIC MYELOID LEUKAEMIA
     Route: 048
     Dates: start: 20130823
  2. CALCIUM (CALCIUM) [Concomitant]
  3. LEVOTHYROXINE (LEVOTHYROXINE) [Concomitant]

REACTIONS (2)
  - Feeling cold [None]
  - Chills [None]
